FAERS Safety Report 11780719 (Version 2)
Quarter: 2018Q1

REPORT INFORMATION
  Report Type: Report from Study
  Country: GB (occurrence: GB)
  Receive Date: 20151126
  Receipt Date: 20180314
  Transmission Date: 20180508
  Serious: Yes (Death, Hospitalization)
  Sender: FDA-Public Use
  Company Number: GB-ROCHE-1665893

PATIENT
  Age: 84 Year
  Sex: Female

DRUGS (27)
  1. PARACETAMOL [Concomitant]
     Active Substance: ACETAMINOPHEN
     Indication: ANALGESIC THERAPY
     Route: 048
  2. LEVOTHYROXINE. [Concomitant]
     Active Substance: LEVOTHYROXINE
     Route: 048
  3. SIMVASTATIN. [Concomitant]
     Active Substance: SIMVASTATIN
     Route: 048
  4. BISOPROLOL [Concomitant]
     Active Substance: BISOPROLOL
     Route: 048
  5. OMEPRAZOLE. [Concomitant]
     Active Substance: OMEPRAZOLE
     Route: 048
  6. CHLORAMPHENICOL [Concomitant]
     Active Substance: CHLORAMPHENICOL
  7. ASPIRINE [Concomitant]
     Active Substance: ASPIRIN
     Route: 048
  8. ACETYLCYSTEINE. [Concomitant]
     Active Substance: ACETYLCYSTEINE
     Dosage: ONE DROP TWICE A DAY RIGHT EYE AND 1 DROP FOUR TIMES A DAY LEFT EYE
     Route: 061
  9. CICLOSPORIN [Concomitant]
     Active Substance: CYCLOSPORINE
     Dosage: 1 DROP
     Route: 061
  10. GABAPENTIN. [Concomitant]
     Active Substance: GABAPENTIN
     Route: 048
  11. BUPRENORPHINE. [Concomitant]
     Active Substance: BUPRENORPHINE
     Indication: ANALGESIC THERAPY
     Dosage: (TRANSTEC) 52.5 MICROGRAMS RELEASED PER HOUR DRESSING
     Route: 061
  12. ALENDRONIC ACID [Concomitant]
     Active Substance: ALENDRONIC ACID
     Indication: CHRONIC KIDNEY DISEASE
     Route: 065
  13. LEVOTHYROXINE. [Concomitant]
     Active Substance: LEVOTHYROXINE
     Route: 048
  14. PREDNISOLONE. [Concomitant]
     Active Substance: PREDNISOLONE
     Route: 048
  15. VALSARTAN. [Concomitant]
     Active Substance: VALSARTAN
     Route: 048
  16. BETAHISTINE [Concomitant]
     Active Substance: BETAHISTINE
     Route: 048
  17. SODIUM HYALURONATE [Concomitant]
     Active Substance: HYALURONATE SODIUM
     Dosage: RIGHT EYE
     Route: 061
  18. COMPRESSION BANDAGE [Concomitant]
     Route: 061
  19. DEXAMETHASONE. [Concomitant]
     Active Substance: DEXAMETHASONE
     Dosage: 0.1 % MINIMS LEFT EYE
     Route: 061
  20. FOLIC ACID. [Concomitant]
     Active Substance: FOLIC ACID
     Dosage: EXCEPT DAY OF METHOTREXATE
     Route: 048
  21. METHOTREXATE. [Concomitant]
     Active Substance: METHOTREXATE
     Route: 048
  22. PREDNISOLONE. [Concomitant]
     Active Substance: PREDNISOLONE
     Route: 048
  23. GLYCERYL TRINITRATE [Concomitant]
     Active Substance: NITROGLYCERIN
     Route: 060
  24. RITUXIMAB. [Suspect]
     Active Substance: RITUXIMAB
     Indication: RHEUMATOID ARTHRITIS
     Dosage: 10/OCT/2013 DATE OF LAST DOSE PRIOR TO SAE
     Route: 042
     Dates: start: 20080215
  25. AMLODIPINE [Concomitant]
     Active Substance: AMLODIPINE BESYLATE
     Route: 048
  26. CALCEOS [Concomitant]
     Active Substance: CALCIUM CARBONATE\CHOLECALCIFEROL
     Route: 048
  27. ILOPROST. [Concomitant]
     Active Substance: ILOPROST

REACTIONS (2)
  - Cellulitis [Unknown]
  - Chronic kidney disease [Fatal]

NARRATIVE: CASE EVENT DATE: 20150729
